FAERS Safety Report 10850241 (Version 1)
Quarter: 2015Q1

REPORT INFORMATION
  Report Type: Spontaneous
  Country: US (occurrence: US)
  Receive Date: 20150221
  Receipt Date: 20150221
  Transmission Date: 20150721
  Serious: No
  Sender: FDA-Public Use
  Company Number: US-NOVEN-14US013034

PATIENT
  Sex: Female

DRUGS (1)
  1. MINIVELLE [Suspect]
     Active Substance: ESTRADIOL
     Indication: HOT FLUSH
     Dosage: 1/2 X 0.0375MG, UNK
     Route: 062
     Dates: start: 201411

REACTIONS (7)
  - Rhinorrhoea [Not Recovered/Not Resolved]
  - Application site rash [Not Recovered/Not Resolved]
  - Drug effect increased [Recovered/Resolved]
  - Application site irritation [Not Recovered/Not Resolved]
  - Fluid retention [Recovering/Resolving]
  - Application site erythema [Not Recovered/Not Resolved]
  - Wrong technique in drug usage process [Not Recovered/Not Resolved]

NARRATIVE: CASE EVENT DATE: 2014
